FAERS Safety Report 20666418 (Version 1)
Quarter: 2022Q2

REPORT INFORMATION
  Report Type: Spontaneous
  Country: US (occurrence: US)
  Receive Date: 20220403
  Receipt Date: 20220403
  Transmission Date: 20220720
  Serious: No
  Sender: FDA-Public Use
  Company Number: US-SANOFI-01042021

PATIENT
  Age: 75 Year
  Sex: Male

DRUGS (2)
  1. TOUJEO [Suspect]
     Active Substance: INSULIN GLARGINE
     Indication: Diabetes mellitus
     Dosage: DRUG STRUCTURE DOSAGE : 10 TO 12 UNITS DRUG INTERVAL DOSAGE : ONCE DAILY DRUG TREATMENT DURATION:ONL
  2. HUMALOG [Concomitant]
     Active Substance: INSULIN LISPRO
     Dosage: UNK

REACTIONS (1)
  - Blood glucose increased [Unknown]
